FAERS Safety Report 12326957 (Version 3)
Quarter: 2016Q3

REPORT INFORMATION
  Report Type: Spontaneous
  Country: US (occurrence: US)
  Receive Date: 20160503
  Receipt Date: 20160727
  Transmission Date: 20161109
  Serious: Yes (Other)
  Sender: FDA-Public Use
  Company Number: US-PFIZER INC-2016236971

PATIENT
  Age: 66 Year
  Sex: Female

DRUGS (1)
  1. XELJANZ XR [Suspect]
     Active Substance: TOFACITINIB CITRATE
     Dosage: 11 MG, UNK

REACTIONS (7)
  - Lower respiratory tract infection [Unknown]
  - Headache [Not Recovered/Not Resolved]
  - Nasopharyngitis [Unknown]
  - Oropharyngeal pain [Unknown]
  - Respiratory tract congestion [Unknown]
  - Influenza like illness [Unknown]
  - Malaise [Unknown]
